FAERS Safety Report 8474831-5 (Version None)
Quarter: 2012Q2

REPORT INFORMATION
  Report Type: 
  Country: None (occurrence: None)
  Receive Date: 20120628
  Receipt Date: 20120620
  Transmission Date: 20120825
  Serious: Yes (Other)
  Sender: FDA-Public Use
  Company Number: US-BRISTOL-MYERS SQUIBB COMPANY-16560716

PATIENT
  Age: 75 Year
  Sex: Male
  Weight: 71 kg

DRUGS (8)
  1. PREDNISONE TAB [Concomitant]
  2. AMARYL [Concomitant]
     Route: 048
  3. LEVEMIR [Concomitant]
     Route: 058
  4. CRESTOR [Concomitant]
  5. DIOVAN [Concomitant]
     Dosage: 160MG/DAY
     Route: 048
  6. KOMBIGLYZE XR [Suspect]
     Indication: TYPE 2 DIABETES MELLITUS
     Dosage: 1DF=2.5/1000 UNITS NOS
     Route: 048
     Dates: start: 20120401
  7. OMEGA 3 FATTY ACID [Concomitant]
  8. IMURAN [Concomitant]

REACTIONS (1)
  - RENAL FAILURE ACUTE [None]
